FAERS Safety Report 20068803 (Version 1)
Quarter: 2021Q4

REPORT INFORMATION
  Report Type: Spontaneous
  Country: US (occurrence: US)
  Receive Date: 20211115
  Receipt Date: 20211115
  Transmission Date: 20220303
  Serious: Yes (Other)
  Sender: FDA-Public Use
  Company Number: US-PFIZER INC-2020494712

PATIENT
  Age: 55 Year
  Sex: Male
  Weight: 117.93 kg

DRUGS (2)
  1. XELJANZ XR [Suspect]
     Active Substance: TOFACITINIB CITRATE
     Dosage: 11 MG, UNK
  2. METHOTREXATE SODIUM [Concomitant]
     Active Substance: METHOTREXATE SODIUM
     Dosage: (250 MG/10ML SOLUTION INJECT INJECTION ONCE WEEKLY)

REACTIONS (7)
  - Bladder cancer [Unknown]
  - Malaise [Unknown]
  - Prostatitis [Unknown]
  - Pain [Unknown]
  - Peripheral swelling [Unknown]
  - Joint swelling [Unknown]
  - Infection [Unknown]
